FAERS Safety Report 8986906 (Version 1)
Quarter: 2012Q4

REPORT INFORMATION
  Report Type: Spontaneous
  Country: US (occurrence: None)
  Receive Date: 20121119
  Receipt Date: 20121119
  Transmission Date: 20130627
  Serious: No
  Sender: FDA-Public Use
  Company Number: 2012-00185

PATIENT
  Age: 28 Year
  Sex: Female

DRUGS (1)
  1. ZICAM INTENSE SINUS RELIEF [Suspect]
     Indication: NASAL CONGESTION
     Dosage: used in each nostril x2
     Dates: start: 20120818, end: 20120819

REACTIONS (1)
  - Anosmia [None]
